FAERS Safety Report 10448619 (Version 1)
Quarter: 2014Q3

REPORT INFORMATION
  Report Type: Spontaneous
  Country: BR (occurrence: BR)
  Receive Date: 20140912
  Receipt Date: 20140912
  Transmission Date: 20150326
  Serious: Yes (Other)
  Sender: FDA-Public Use
  Company Number: BR-AMGEN-BRASP2014069399

PATIENT
  Age: 34 Year
  Sex: Female
  Weight: 72 kg

DRUGS (7)
  1. METHOTREXATE [Concomitant]
     Active Substance: METHOTREXATE
     Dosage: 2.5 MG, 6 TABLETS PER WEEK
     Dates: start: 2010
  2. METICORTEN [Concomitant]
     Active Substance: PREDNISONE
     Indication: PAIN
     Dosage: 10 MG,1 TABLET DAILY
     Route: 048
  3. METICORTEN [Concomitant]
     Active Substance: PREDNISONE
     Dosage: 2 TABLETS AS NEEDED FOR PAIN
  4. FOLIC ACID. [Concomitant]
     Active Substance: FOLIC ACID
     Dosage: 50 MG, 1 TABLET PER WEEK
  5. ENBREL [Suspect]
     Active Substance: ETANERCEPT
     Indication: RHEUMATOID ARTHRITIS
     Dosage: 50 MG, ONCE A WEEK
     Route: 065
     Dates: end: 201312
  6. CALCIUM [Concomitant]
     Active Substance: CALCIUM
     Dosage: 2 DF, 2 TABLETS A DAY
  7. OMEPRAZOL                          /00661201/ [Concomitant]
     Active Substance: OMEPRAZOLE
     Dosage: 20 MG, 1 TABLET A DAY

REACTIONS (2)
  - Lung infection [Unknown]
  - Swelling [Unknown]

NARRATIVE: CASE EVENT DATE: 2013
